FAERS Safety Report 21244804 (Version 1)
Quarter: 2022Q3

REPORT INFORMATION
  Report Type: Report from Study
  Country: US (occurrence: US)
  Receive Date: 20220823
  Receipt Date: 20220823
  Transmission Date: 20221026
  Serious: No
  Sender: FDA-Public Use
  Company Number: US-NOVARTISTESTPH-NVSC2022US188443

PATIENT
  Age: 84 Year
  Sex: Male

DRUGS (1)
  1. ENTRESTO [Suspect]
     Active Substance: SACUBITRIL\VALSARTAN
     Indication: Product used for unknown indication
     Dosage: 0.5 DOSAGE FORM, BID (1/2 TABLET IN THE MORNING AND EVENING FOR THE FIRST WEEK THEN 1 TABLET)
     Route: 048
     Dates: start: 20220821

REACTIONS (2)
  - Wrong technique in product usage process [Unknown]
  - Underdose [Unknown]
